FAERS Safety Report 16014279 (Version 1)
Quarter: 2019Q1

REPORT INFORMATION
  Report Type: Spontaneous
  Country: FR (occurrence: FR)
  Receive Date: 20190227
  Receipt Date: 20190227
  Transmission Date: 20190418
  Serious: Yes (Other)
  Sender: FDA-Public Use
  Company Number: FR-MYLANLABS-2013S1003029

PATIENT
  Age: 53 Year
  Sex: Female
  Weight: 63 kg

DRUGS (8)
  1. SABRIL [Concomitant]
     Active Substance: VIGABATRIN
     Indication: PRODUCT USED FOR UNKNOWN INDICATION
     Dosage: 2 DF,QD
     Route: 048
     Dates: start: 2012
  2. CYPROTERONE W/ESTRADIOL [Concomitant]
     Indication: PRODUCT USED FOR UNKNOWN INDICATION
     Dosage: UNK
     Dates: start: 2012
  3. TEGRETOL [Suspect]
     Active Substance: CARBAMAZEPINE
     Dosage: 3 DF,QD
     Dates: start: 200110, end: 20180706
  4. CARBAMAZEPINE. [Concomitant]
     Active Substance: CARBAMAZEPINE
     Indication: EPILEPSY
     Dosage: 500 MG,QD
     Dates: start: 2012
  5. TEGRETOL [Suspect]
     Active Substance: CARBAMAZEPINE
     Indication: EPILEPSY
     Dosage: 3 DF,QD
     Dates: start: 1982, end: 2001
  6. ESTROGEL [Concomitant]
     Active Substance: ESTRADIOL
     Indication: PRODUCT USED FOR UNKNOWN INDICATION
     Dosage: UNK
  7. CARBAMAZEPINE. [Suspect]
     Active Substance: CARBAMAZEPINE
     Indication: PRODUCT USED FOR UNKNOWN INDICATION
     Dosage: UNK
  8. TEGRETOL [Suspect]
     Active Substance: CARBAMAZEPINE
     Dosage: 1.5 DF,QD
     Dates: start: 1992

REACTIONS (12)
  - Eczema [Unknown]
  - Staphylococcal infection [Unknown]
  - Alopecia [Unknown]
  - Hirsutism [Not Recovered/Not Resolved]
  - Galactorrhoea [Recovered/Resolved]
  - Ear infection [Unknown]
  - Osteoporosis [Unknown]
  - Osteopenia [Unknown]
  - Nausea [Unknown]
  - Hormone level abnormal [Not Recovered/Not Resolved]
  - Fall [Unknown]
  - Acne [Unknown]

NARRATIVE: CASE EVENT DATE: 2018
